FAERS Safety Report 5123706-8 (Version None)
Quarter: 2006Q3

REPORT INFORMATION
  Report Type: 
  Country: None (occurrence: None)
  Receive Date: 20060811
  Receipt Date: 20060511
  Transmission Date: 20061208
  Serious: No
  Sender: FDA-Public Use
  Company Number: S06-USA-01867-01

PATIENT
  Age: 89 Year
  Sex: Female

DRUGS (8)
  1. NAMENDA [Suspect]
     Indication: AMNESIA
     Dosage: 5 MG QS PO
     Route: 048
     Dates: start: 20060429, end: 20060505
  2. NAMENDA [Suspect]
     Indication: AMNESIA
     Dosage: 5 MG BID PO
     Route: 048
     Dates: start: 20060506
  3. LEXAPRO [Suspect]
     Indication: DEPRESSION
     Dosage: 15 MG QHS PO
     Route: 048
     Dates: start: 20051101
  4. ARICEPT [Concomitant]
  5. PLAVIX [Concomitant]
  6. NORVASC [Concomitant]
  7. PREMARIN [Concomitant]
  8. AMBIEN [Concomitant]

REACTIONS (1)
  - FATIGUE [None]
